FAERS Safety Report 16943569 (Version 1)
Quarter: 2020Q3

REPORT INFORMATION
  Report Type: Spontaneous
  Country: GB (occurrence: GB)
  Receive Date: 20191022
  Receipt Date: 20191022
  Transmission Date: 20201104
  Serious: Yes (Disabling)
  Sender: FDA-Public Use
  Company Number: GB-TEVA-2019-GB-1124315

PATIENT
  Age: 76 Year
  Sex: Male

DRUGS (12)
  1. APIXABAN [Suspect]
     Active Substance: APIXABAN
     Indication: ATRIAL FIBRILLATION
     Dosage: 10 MG
     Route: 048
  2. LANSOPRAZOLE. [Suspect]
     Active Substance: LANSOPRAZOLE
     Dosage: EACH MORNING 30 MG
     Route: 048
  3. FERROUS SULFATE. [Suspect]
     Active Substance: FERROUS SULFATE
     Indication: HAEMOGLOBIN DECREASED
     Dosage: 600 MG
     Route: 048
  4. CARVEDILOL. [Suspect]
     Active Substance: CARVEDILOL
     Indication: EJECTION FRACTION DECREASED
     Dosage: 6.25 MG
     Route: 048
  5. BUMETANIDE. [Suspect]
     Active Substance: BUMETANIDE
     Indication: FLUID OVERLOAD
     Dosage: 2MG EACH MORNING AND 1MG BEFORE LUNCH 3 MG
     Route: 048
  6. E45 [Suspect]
     Active Substance: LANOLIN\LIGHT MINERAL OIL\PARAFFIN
     Dosage: APPLY 3 DOSAGE FORMS
     Route: 061
  7. ATORVASTATIN [Suspect]
     Active Substance: ATORVASTATIN
     Indication: PROPHYLAXIS
     Dosage: AT NIGHT 80 MG
     Route: 048
  8. DOXAZOSIN [Suspect]
     Active Substance: DOXAZOSIN MESYLATE
     Indication: HYPERTENSION
     Dosage: EACH MORNING 4 MG
     Route: 048
  9. SPIRONOLACTONE. [Suspect]
     Active Substance: SPIRONOLACTONE
     Indication: EJECTION FRACTION DECREASED
     Dosage: EACH MORNING 25 MG
     Route: 048
  10. AMLODIPINE [Suspect]
     Active Substance: AMLODIPINE BESYLATE
     Dosage: EACH MORNING  10 MG
     Route: 048
  11. SILDENAFIL. [Suspect]
     Active Substance: SILDENAFIL
     Indication: PULMONARY HYPERTENSION
     Dosage: 75 MG
     Route: 048
  12. SANDO?K (POTASSIUM CHLORIDE) [Suspect]
     Active Substance: POTASSIUM CHLORIDE
     Indication: BLOOD POTASSIUM DECREASED
     Dosage: 6 DOSAGE FORMS
     Route: 048

REACTIONS (2)
  - Rash [Not Recovered/Not Resolved]
  - Pain [Not Recovered/Not Resolved]

NARRATIVE: CASE EVENT DATE: 20190921
